FAERS Safety Report 5519224-5 (Version None)
Quarter: 2007Q4

REPORT INFORMATION
  Report Type: 
  Country: None (occurrence: None)
  Receive Date: 20071114
  Receipt Date: 20071114
  Transmission Date: 20080405
  Serious: No
  Sender: FDA-Public Use
  Company Number: None

PATIENT
  Sex: Female
  Weight: 54.8 kg

DRUGS (5)
  1. FLUOROURACIL [Suspect]
     Dosage: 6762 MG
     Route: 040
  2. BEVACIZUMAB (RHUMAB VEGF) [Suspect]
     Dosage: 572 MG
  3. LEUCOVORIN CALCIUM [Suspect]
     Dosage: 1310 MG
  4. ELOXATIN [Suspect]
  5. LYRICA [Concomitant]

REACTIONS (4)
  - COLON CANCER [None]
  - DEEP VEIN THROMBOSIS [None]
  - MALIGNANT NEOPLASM PROGRESSION [None]
  - NEUROPATHY PERIPHERAL [None]
